FAERS Safety Report 6451568-5 (Version None)
Quarter: 2009Q4

REPORT INFORMATION
  Report Type: 
  Country: None (occurrence: None)
  Receive Date: 20091123
  Receipt Date: 20091113
  Transmission Date: 20100525
  Serious: Yes (Hospitalization, Other)
  Sender: FDA-Public Use
  Company Number: PL-WYE-H12188109

PATIENT
  Sex: Male
  Weight: 80 kg

DRUGS (7)
  1. TEMSIROLIMUS [Suspect]
     Indication: RENAL CELL CARCINOMA
     Route: 042
     Dates: start: 20090617, end: 20091021
  2. LOKREN [Concomitant]
     Indication: HYPERTENSION
     Dosage: UNKNOWN
     Dates: start: 20090622
  3. ALLOPURINOL [Concomitant]
     Indication: BLOOD CREATININE INCREASED
     Dosage: UNKNOWN
     Dates: start: 20090701
  4. FUROSEMIDE [Concomitant]
     Indication: BLOOD CREATININE INCREASED
     Dosage: UNKNOWN
     Dates: start: 20090701
  5. POTASSIUM CHLORIDE [Concomitant]
     Indication: MEDICAL DIET
     Dosage: UNKNOWN
     Dates: start: 20090701
  6. BEVACIZUMAB [Suspect]
     Indication: RENAL CELL CARCINOMA
     Route: 042
     Dates: start: 20090617, end: 20091021
  7. MOLSIDOMINE [Concomitant]
     Dosage: UNKNOWN
     Dates: start: 20091026

REACTIONS (1)
  - HAEMORRHOIDS [None]
